FAERS Safety Report 20578336 (Version 1)
Quarter: 2022Q1

REPORT INFORMATION
  Report Type: Spontaneous
  Country: US (occurrence: None)
  Receive Date: 20220310
  Receipt Date: 20220310
  Transmission Date: 20220423
  Serious: Yes (Life-Threatening)
  Sender: FDA-Public Use
  Company Number: None

PATIENT
  Age: 87 Year
  Sex: Male
  Weight: 59 kg

DRUGS (2)
  1. LORAZEPAM [Suspect]
     Active Substance: LORAZEPAM
     Indication: Nausea
     Dosage: FREQUENCY : AS NEEDED;?
     Route: 042
     Dates: start: 20211015, end: 20211015
  2. LORAZEPAM [Suspect]
     Active Substance: LORAZEPAM
     Indication: Vomiting

REACTIONS (2)
  - Somnolence [None]
  - Coma [None]

NARRATIVE: CASE EVENT DATE: 20211006
